FAERS Safety Report 19209553 (Version 2)
Quarter: 2023Q4

REPORT INFORMATION
  Report Type: Spontaneous
  Country: US (occurrence: US)
  Receive Date: 20210504
  Receipt Date: 20231213
  Transmission Date: 20240110
  Serious: Yes (Other)
  Sender: FDA-Public Use
  Company Number: US-SUN PHARMACEUTICAL INDUSTRIES LTD-2021R1-293473

PATIENT
  Age: 21 Year
  Sex: Male

DRUGS (15)
  1. OLANZAPINE [Suspect]
     Active Substance: OLANZAPINE
     Indication: Agitation
     Dosage: 20 MILLIGRAM
     Route: 030
  2. OLANZAPINE [Suspect]
     Active Substance: OLANZAPINE
     Indication: Paranoia
  3. OLANZAPINE [Suspect]
     Active Substance: OLANZAPINE
     Indication: Hallucination
  4. HALOPERIDOL [Suspect]
     Active Substance: HALOPERIDOL
     Indication: Agitation
     Dosage: 30 MG
     Route: 030
  5. HALOPERIDOL [Suspect]
     Active Substance: HALOPERIDOL
     Indication: Paranoia
  6. HALOPERIDOL [Suspect]
     Active Substance: HALOPERIDOL
     Indication: Hallucination
  7. LORAZEPAM [Suspect]
     Active Substance: LORAZEPAM
     Indication: Agitation
     Dosage: 6 MG
     Route: 030
  8. LORAZEPAM [Suspect]
     Active Substance: LORAZEPAM
     Indication: Paranoia
  9. LORAZEPAM [Suspect]
     Active Substance: LORAZEPAM
     Indication: Hallucination
  10. CHLORPROMAZINE [Suspect]
     Active Substance: CHLORPROMAZINE
     Indication: Agitation
     Dosage: 25 MG
     Route: 030
  11. CHLORPROMAZINE [Suspect]
     Active Substance: CHLORPROMAZINE
     Indication: Paranoia
  12. CHLORPROMAZINE [Suspect]
     Active Substance: CHLORPROMAZINE
     Indication: Hallucination
  13. BENZTROPINE [Suspect]
     Active Substance: BENZTROPINE
     Indication: Agitation
     Dosage: 1 MG
     Route: 030
  14. BENZTROPINE [Suspect]
     Active Substance: BENZTROPINE
     Indication: Paranoia
  15. BENZTROPINE [Suspect]
     Active Substance: BENZTROPINE
     Indication: Hallucination

REACTIONS (1)
  - Disease progression [Unknown]
